FAERS Safety Report 7241413-2 (Version None)
Quarter: 2011Q1

REPORT INFORMATION
  Report Type: 
  Country: None (occurrence: None)
  Receive Date: 20110124
  Receipt Date: 20110120
  Transmission Date: 20110831
  Serious: Yes (Other)
  Sender: FDA-Public Use
  Company Number: JP-ASTRAZENECA-2011SE03222

PATIENT
  Age: 62 Year
  Sex: Female

DRUGS (8)
  1. SINGULAIR [Concomitant]
     Route: 048
  2. EPADEL S [Suspect]
     Route: 048
     Dates: start: 20101227
  3. ASPIRIN [Concomitant]
     Route: 048
  4. PARIET [Concomitant]
     Route: 048
  5. LIPITOR [Concomitant]
     Route: 048
  6. BLOPRESS [Suspect]
     Indication: HYPERTENSION
     Route: 048
     Dates: start: 20101227, end: 20101231
  7. ZETIA [Concomitant]
     Route: 048
  8. LENDORMIN [Concomitant]
     Route: 048

REACTIONS (1)
  - JAUNDICE [None]
